FAERS Safety Report 11735016 (Version 1)
Quarter: 2015Q4

REPORT INFORMATION
  Report Type: Spontaneous
  Country: IT (occurrence: IT)
  Receive Date: 20151113
  Receipt Date: 20151113
  Transmission Date: 20160304
  Serious: Yes (Hospitalization)
  Sender: FDA-Public Use
  Company Number: IT-PFIZER INC-2015381608

PATIENT
  Age: 36 Year
  Sex: Male

DRUGS (6)
  1. LAROXYL [Suspect]
     Active Substance: AMITRIPTYLINE
     Dosage: 20 ML, SINGLE
     Route: 048
     Dates: start: 20151011, end: 20151011
  2. RIVOTRIL [Suspect]
     Active Substance: CLONAZEPAM
     Dosage: 10 ML, SINGLE
     Route: 048
     Dates: start: 20151011, end: 20151011
  3. DEPAKIN [Concomitant]
     Active Substance: VALPROATE SODIUM
     Dosage: UNK
  4. SERTRALINE HCL [Suspect]
     Active Substance: SERTRALINE HYDROCHLORIDE
     Dosage: 15 DF, SINGLE
     Route: 048
     Dates: start: 20151011, end: 20151011
  5. SUBOXONE [Concomitant]
     Active Substance: BUPRENORPHINE HYDROCHLORIDE\NALOXONE HYDROCHLORIDE
     Dosage: 16 MG, UNK
  6. GABAPENTIN. [Concomitant]
     Active Substance: GABAPENTIN
     Dosage: 40 MG, UNK

REACTIONS (3)
  - Confusional state [Unknown]
  - Drug abuse [Unknown]
  - Restlessness [Unknown]

NARRATIVE: CASE EVENT DATE: 20151011
